FAERS Safety Report 20667765 (Version 7)
Quarter: 2022Q3

REPORT INFORMATION
  Report Type: Spontaneous
  Country: FR (occurrence: FR)
  Receive Date: 20220404
  Receipt Date: 20220907
  Transmission Date: 20221026
  Serious: Yes (Hospitalization, Other)
  Sender: FDA-Public Use
  Company Number: FR-Concordia Pharmaceuticals Inc.-GSH201703-001429

PATIENT

DRUGS (26)
  1. HYDROXYCHLOROQUINE SULFATE [Suspect]
     Active Substance: HYDROXYCHLOROQUINE SULFATE
     Indication: Hypertension
     Dosage: 2 DOSAGE FORM, QD
     Route: 048
     Dates: start: 201512
  2. HYDROXYCHLOROQUINE SULFATE [Suspect]
     Active Substance: HYDROXYCHLOROQUINE SULFATE
     Indication: Cutaneous lupus erythematosus
     Dosage: 200 MG, BID
     Route: 065
     Dates: start: 201512, end: 201606
  3. HYDROXYCHLOROQUINE SULFATE [Suspect]
     Active Substance: HYDROXYCHLOROQUINE SULFATE
     Indication: Raynaud^s phenomenon
     Dosage: 45 DOSAGE FORM, SINGLE
     Route: 048
     Dates: start: 20161127, end: 20161127
  4. REVLIMID [Suspect]
     Active Substance: LENALIDOMIDE
     Indication: Product used for unknown indication
     Dosage: 5 MG, QD
     Route: 065
  5. NIFEDIPINE [Concomitant]
     Active Substance: NIFEDIPINE
     Dosage: UNK (LP 30 1 PER DAY), QD
     Route: 065
  6. THALIDOMIDE [Concomitant]
     Active Substance: THALIDOMIDE
     Indication: Chronic cutaneous lupus erythematosus
     Dosage: 1 DOSAGE FORM
     Route: 048
     Dates: start: 20160613
  7. THALIDOMIDE [Concomitant]
     Active Substance: THALIDOMIDE
     Dosage: 100 MG, QD
     Route: 065
  8. THALIDOMIDE [Concomitant]
     Active Substance: THALIDOMIDE
     Dosage: 50 MG, QD
     Route: 065
  9. THALIDOMIDE [Concomitant]
     Active Substance: THALIDOMIDE
     Dosage: 1 DOSAGE FORM (IN LATE NOVEMBER TWICE A WEEK)
     Dates: start: 201611
  10. THALIDOMIDE [Concomitant]
     Active Substance: THALIDOMIDE
     Dosage: 28 DOSAGE FORM, SINGLE
     Route: 048
     Dates: start: 20161127, end: 20161127
  11. THALIDOMIDE [Concomitant]
     Active Substance: THALIDOMIDE
     Dosage: 1 DOSAGE FORM, QOD
     Route: 065
  12. THALIDOMIDE [Concomitant]
     Active Substance: THALIDOMIDE
     Dosage: 50 MG, QD
     Route: 065
  13. ALPRAZOLAM [Concomitant]
     Active Substance: ALPRAZOLAM
     Dosage: 0.5 DOSAGE FORM, QD
     Route: 065
     Dates: start: 201611
  14. ALPRAZOLAM [Concomitant]
     Active Substance: ALPRAZOLAM
     Dosage: 30 DOSAGE FORM, SINGLE
     Route: 065
     Dates: start: 20161127, end: 20161127
  15. ALPRAZOLAM [Concomitant]
     Active Substance: ALPRAZOLAM
     Dosage: UNK
     Route: 065
  16. ASPIRIN [Concomitant]
     Active Substance: ASPIRIN
     Dosage: UNK
     Route: 065
  17. IMOVANE [Concomitant]
     Active Substance: ZOPICLONE
     Dosage: UNK
     Route: 065
  18. DUPHALAC [Concomitant]
     Active Substance: LACTULOSE
     Dosage: UNK
     Route: 065
  19. ACETAMINOPHEN [Concomitant]
     Active Substance: ACETAMINOPHEN
     Dosage: UNK
     Route: 065
  20. RISPERDAL [Concomitant]
     Active Substance: RISPERIDONE
     Dosage: UNK
     Route: 065
  21. MINERAL OIL [Concomitant]
     Active Substance: MINERAL OIL
     Dosage: UNK
     Route: 065
  22. XANAX [Concomitant]
     Active Substance: ALPRAZOLAM
     Dosage: UNK
     Route: 065
  23. TROPATEPINE HYDROCHLORIDE [Concomitant]
     Active Substance: TROPATEPINE HYDROCHLORIDE
     Dosage: UNK
     Route: 065
  24. CANNABIS SATIVA SUBSP. INDICA TOP [Concomitant]
     Active Substance: CANNABIS SATIVA SUBSP. INDICA TOP
     Dosage: UNK
     Route: 065
  25. REVLIMID [Concomitant]
     Active Substance: LENALIDOMIDE
     Dosage: UNK
     Route: 065
  26. ASPIRIN [Concomitant]
     Active Substance: ASPIRIN
     Dosage: UNK
     Route: 065
     Dates: start: 20160613

REACTIONS (47)
  - Cardiac arrest [Unknown]
  - Arthralgia [Not Recovered/Not Resolved]
  - Delirium [Unknown]
  - Suicide attempt [Recovered/Resolved]
  - Major depression [Unknown]
  - Sleep apnoea syndrome [Unknown]
  - Depression [Recovering/Resolving]
  - Toxicity to various agents [Unknown]
  - Hallucination, auditory [Unknown]
  - Emotional distress [Unknown]
  - Loss of consciousness [Unknown]
  - Suicidal ideation [Unknown]
  - Hallucination [Unknown]
  - Depression [Unknown]
  - Chronic cutaneous lupus erythematosus [Unknown]
  - Chronic cutaneous lupus erythematosus [Unknown]
  - Systemic lupus erythematosus [Unknown]
  - Psychotic disorder [Unknown]
  - Weight decreased [Recovered/Resolved]
  - Nightmare [Unknown]
  - Back pain [Unknown]
  - Sleep disorder [Unknown]
  - Foot fracture [Unknown]
  - Malaise [Unknown]
  - Frostbite [Recovering/Resolving]
  - Peripheral coldness [Recovering/Resolving]
  - Asthenia [Unknown]
  - Psychomotor retardation [Unknown]
  - Amnesia [Unknown]
  - Condition aggravated [Unknown]
  - Persecutory delusion [Unknown]
  - Toxicity to various agents [Unknown]
  - Cyanosis [Unknown]
  - Depressed mood [Unknown]
  - Substance use [Unknown]
  - Chillblains [Unknown]
  - Mental disorder [Unknown]
  - Raynaud^s phenomenon [Unknown]
  - Rash erythematous [Unknown]
  - Rash erythematous [Unknown]
  - Fatigue [Unknown]
  - Headache [Unknown]
  - Diarrhoea [Unknown]
  - Fatigue [Unknown]
  - Rash [Unknown]
  - Overdose [Unknown]
  - Drug intolerance [Unknown]

NARRATIVE: CASE EVENT DATE: 20160301
